FAERS Safety Report 6521232-2 (Version None)
Quarter: 2009Q4

REPORT INFORMATION
  Report Type: 
  Country: None (occurrence: None)
  Receive Date: 20091230
  Receipt Date: 20091221
  Transmission Date: 20100525
  Serious: No
  Sender: FDA-Public Use
  Company Number: US-BIOGENIDEC-2009BI036799

PATIENT
  Age: 42 Year
  Sex: Female

DRUGS (1)
  1. TYSABRI [Suspect]
     Indication: MULTIPLE SCLEROSIS
     Route: 042
     Dates: start: 20071019

REACTIONS (15)
  - BRONCHITIS [None]
  - CHRONIC SINUSITIS [None]
  - COORDINATION ABNORMAL [None]
  - CYST [None]
  - DEPRESSION [None]
  - DYSARTHRIA [None]
  - DYSPHEMIA [None]
  - DYSPHONIA [None]
  - FALL [None]
  - FATIGUE [None]
  - HYPOAESTHESIA [None]
  - MUSCLE SPASMS [None]
  - OPTIC NEURITIS [None]
  - PAIN IN EXTREMITY [None]
  - SEASONAL ALLERGY [None]
